FAERS Safety Report 5084683-1 (Version None)
Quarter: 2006Q3

REPORT INFORMATION
  Report Type: 
  Country: None (occurrence: None)
  Receive Date: 20060818
  Receipt Date: 20060818
  Transmission Date: 20061208
  Serious: Yes (Other)
  Sender: FDA-Public Use
  Company Number: None

PATIENT
  Age: 75 Year
  Sex: Male
  Weight: 68.0396 kg

DRUGS (2)
  1. LODINE [Suspect]
     Indication: MUSCULOSKELETAL PAIN
     Dosage: 200 MG Q8HRS PRN PO
     Route: 048
     Dates: start: 20060724, end: 20060724
  2. FLOMAX [Concomitant]

REACTIONS (6)
  - BENIGN PROSTATIC HYPERPLASIA [None]
  - BLOOD BLISTER [None]
  - NAUSEA [None]
  - PURPURA [None]
  - RASH ERYTHEMATOUS [None]
  - VOMITING [None]
